FAERS Safety Report 7564467-2 (Version None)
Quarter: 2011Q2

REPORT INFORMATION
  Report Type: 
  Country: None (occurrence: None)
  Receive Date: 20110622
  Receipt Date: 20110616
  Transmission Date: 20111010
  Serious: Yes (Hospitalization)
  Sender: FDA-Public Use
  Company Number: PHHO2009US03825

PATIENT
  Sex: Female

DRUGS (16)
  1. PREDNISONE [Concomitant]
     Indication: IMMUNOSUPPRESSION
     Dosage: 5 MG, QD
     Route: 048
     Dates: start: 20050126
  2. COZAAR [Concomitant]
     Indication: HYPERTENSION
     Dosage: UNK
     Dates: start: 20050523
  3. NEURONTIN [Concomitant]
     Indication: NEUROPATHY PERIPHERAL
     Dosage: UNK
  4. PROZAC [Concomitant]
     Indication: DEPRESSION
     Dosage: UNK
  5. ZORTRESS [Suspect]
     Indication: RENAL TRANSPLANT
     Dosage: 1.5 MG, BID
     Route: 048
     Dates: start: 20050725
  6. RANITIDINE [Concomitant]
     Indication: PROPHYLAXIS
     Dosage: UNK
     Dates: start: 20050127
  7. ASPIRIN [Concomitant]
     Indication: PROPHYLAXIS
     Dosage: UNK
     Dates: start: 20050422
  8. NOVOLOG [Concomitant]
     Indication: DIABETES MELLITUS
     Dosage: UNK
  9. ZETIA [Concomitant]
     Indication: HYPERCHOLESTEROLAEMIA
     Dosage: UNK
     Dates: start: 20080729
  10. ZORTRESS [Suspect]
     Dosage: 1 MG, BID
     Route: 048
     Dates: start: 20090318
  11. LEVEMIR [Concomitant]
     Indication: DIABETES MELLITUS
     Dosage: UNK
     Dates: start: 20070101
  12. ZORTRESS [Suspect]
     Dosage: 0.75 MG, BID
     Route: 048
     Dates: start: 20090309
  13. PROGRAF [Concomitant]
     Indication: IMMUNOSUPPRESSION
     Dosage: 3 MG, BID
     Route: 048
     Dates: start: 20050127
  14. SYNTHROID [Concomitant]
     Indication: HYPOTHYROIDISM
     Dosage: UNK
  15. LIPITOR [Concomitant]
     Indication: HYPERCHOLESTEROLAEMIA
     Dosage: UNK
     Dates: start: 20050502
  16. LOPRESSOR [Concomitant]
     Indication: HYPERTENSION
     Dosage: UNK
     Dates: start: 20080729

REACTIONS (8)
  - HIP FRACTURE [None]
  - LOBAR PNEUMONIA [None]
  - DEVICE RELATED INFECTION [None]
  - PYREXIA [None]
  - WOUND INFECTION [None]
  - FALL [None]
  - STAPHYLOCOCCAL INFECTION [None]
  - WOUND DEHISCENCE [None]
